FAERS Safety Report 9292309 (Version 1)
Quarter: 2013Q2

REPORT INFORMATION
  Report Type: Spontaneous
  Country: US (occurrence: None)
  Receive Date: 20130515
  Receipt Date: 20130515
  Transmission Date: 20140414
  Serious: Yes (Other)
  Sender: FDA-Public Use
  Company Number: None

PATIENT
  Age: 62 Year
  Sex: Female
  Weight: 63.5 kg

DRUGS (1)
  1. HYDROXYCHLOROQUINE [Suspect]
     Indication: INFLAMMATION
     Dosage: 200 MG DIVIDE BID PO
     Route: 048
     Dates: start: 201208, end: 201304

REACTIONS (4)
  - Nausea [None]
  - Vomiting [None]
  - Diarrhoea [None]
  - Product substitution issue [None]
